FAERS Safety Report 16716326 (Version 1)
Quarter: 2019Q3

REPORT INFORMATION
  Report Type: Spontaneous
  Country: RU (occurrence: RU)
  Receive Date: 20190819
  Receipt Date: 20190819
  Transmission Date: 20191005
  Serious: Yes (Hospitalization)
  Sender: FDA-Public Use
  Company Number: RU-BAUSCH-BL-2019-022900

PATIENT
  Age: 43 Year
  Sex: Male

DRUGS (12)
  1. DOXYCYLINE [Suspect]
     Active Substance: DOXYCYCLINE
     Indication: VIRAL INFECTION
     Route: 065
     Dates: start: 2017
  2. ACITRETIN. [Concomitant]
     Active Substance: ACITRETIN
     Indication: PSORIASIS
  3. BETAMETHASONE. [Concomitant]
     Active Substance: BETAMETHASONE
     Indication: PSORIATIC ARTHROPATHY
  4. ACITRETIN. [Concomitant]
     Active Substance: ACITRETIN
     Dates: start: 2017
  5. ACITRETIN. [Concomitant]
     Active Substance: ACITRETIN
     Dates: start: 2017
  6. BETAMETHASONE. [Concomitant]
     Active Substance: BETAMETHASONE
     Indication: PSORIASIS
  7. USTEKINUMAB [Concomitant]
     Active Substance: USTEKINUMAB
     Indication: PSORIATIC ARTHROPATHY
     Dates: start: 201505, end: 2016
  8. USTEKINUMAB [Concomitant]
     Active Substance: USTEKINUMAB
     Indication: PSORIASIS
     Dosage: INFUSIONS SHORTENED TO 8 WEEKS
     Dates: start: 2016
  9. PSORALEN [Concomitant]
     Active Substance: PSORALEN
     Indication: PSORIATIC ARTHROPATHY
     Dosage: PUVA BATHS WITH AMMI MAJORIS FUROCUMARINS-12 SESSIONS
     Dates: start: 2017
  10. DOXYCYLINE [Suspect]
     Active Substance: DOXYCYCLINE
     Indication: RESPIRATORY TRACT INFECTION
  11. PSORALEN [Concomitant]
     Active Substance: PSORALEN
     Indication: PSORIASIS
     Dosage: PUVA THERAPY-ULTRAVIOLET LIGHT THERAPY USING THE SENSITIZING EFFECTS OF THE DRUG PSORALEN
  12. ACITRETIN. [Concomitant]
     Active Substance: ACITRETIN
     Indication: PSORIATIC ARTHROPATHY
     Dosage: ACITRETIN (SYNTHETIC ANALOGUE OF VITAMIN A)

REACTIONS (1)
  - Psoriasis [Recovered/Resolved]

NARRATIVE: CASE EVENT DATE: 2017
